FAERS Safety Report 8180573-6 (Version None)
Quarter: 2012Q1

REPORT INFORMATION
  Report Type: 
  Country: None (occurrence: None)
  Receive Date: 20120302
  Receipt Date: 20120224
  Transmission Date: 20120608
  Serious: Yes (Other)
  Sender: FDA-Public Use
  Company Number: JP-PFIZER INC-2012044095

PATIENT
  Age: 72 Year
  Sex: Female

DRUGS (5)
  1. CARVEDILOL [Suspect]
     Dosage: 7.5 MG DAILY
     Route: 048
     Dates: start: 20110101
  2. CONIEL [Concomitant]
     Dosage: 4 MG DAILY
     Route: 048
  3. ALDACTONE [Suspect]
     Dosage: 25 MG, 3X/DAY
     Route: 048
     Dates: start: 20110101
  4. CADUET [Suspect]
     Dosage: [AMLODIPINE BESILATE 5 MG] / [ATORVASTATIN CALCIUM 10 MG] 1X/DAY
     Route: 048
     Dates: start: 20110101
  5. ALENDRONATE SODIUM [Concomitant]
     Dosage: 3 TABLETS DAILY
     Route: 048
     Dates: start: 20110101

REACTIONS (1)
  - HYPOKALAEMIA [None]
